FAERS Safety Report 8588480-1 (Version None)
Quarter: 2012Q3

REPORT INFORMATION
  Report Type: 
  Country: None (occurrence: None)
  Receive Date: 20120813
  Receipt Date: 20120803
  Transmission Date: 20120928
  Serious: Yes (Hospitalization)
  Sender: FDA-Public Use
  Company Number: JP-VERTEX PHARMACEUTICALS INC.-AE-2012-011953

PATIENT
  Age: 57 Year
  Sex: Female

DRUGS (9)
  1. PRIMPERAN TAB [Concomitant]
     Route: 048
     Dates: start: 20120622
  2. TELAVIC (TELAPREVIR) [Suspect]
     Indication: HEPATITIS C
     Route: 048
     Dates: start: 20120619
  3. GLYCYRON [Concomitant]
     Route: 048
     Dates: end: 20120710
  4. URSO 250 [Concomitant]
     Route: 048
  5. FAMOTIDINE [Concomitant]
     Route: 048
     Dates: start: 20120731
  6. REBETOL [Concomitant]
     Route: 048
     Dates: start: 20120801
  7. REBETOL [Concomitant]
     Indication: HEPATITIS C
     Route: 048
     Dates: start: 20120619, end: 20120702
  8. REBETOL [Concomitant]
     Route: 048
     Dates: start: 20120703, end: 20120731
  9. PEGINTERFERON ALFA-2B [Concomitant]
     Indication: HEPATITIS C
     Route: 058
     Dates: start: 20120619

REACTIONS (1)
  - DRUG ERUPTION [None]
